FAERS Safety Report 7582221-2 (Version None)
Quarter: 2011Q2

REPORT INFORMATION
  Report Type: 
  Country: None (occurrence: None)
  Receive Date: 20110622
  Receipt Date: 20110615
  Transmission Date: 20111010
  Serious: Yes (Hospitalization)
  Sender: FDA-Public Use
  Company Number: 2011SP002315

PATIENT
  Age: 40 Year
  Sex: Male

DRUGS (2)
  1. REBETOL [Suspect]
     Indication: HEPATITIS C
     Dosage: 600 MG/QD, PO
     Route: 048
     Dates: start: 20100101, end: 20100101
  2. PEG-INTRON [Suspect]
     Indication: HEPATITIS C
     Dosage: 1.5 MCG/KG, SC
     Route: 058
     Dates: start: 20100101, end: 20100101

REACTIONS (2)
  - DIABETES MELLITUS [None]
  - KETOACIDOSIS [None]
